FAERS Safety Report 9255386 (Version 1)
Quarter: 2013Q2

REPORT INFORMATION
  Report Type: Spontaneous
  Country: US (occurrence: None)
  Receive Date: 20130418
  Receipt Date: 20130418
  Transmission Date: 20140414
  Serious: Yes (Life-Threatening, Other)
  Sender: FDA-Public Use
  Company Number: UTC-031309

PATIENT
  Age: 46 Year
  Sex: Male

DRUGS (4)
  1. REMODULIN (INJECTION FOR INFUSION) (TREPROSTINIL SODIUM) [Suspect]
     Indication: PULMONARY ARTERIAL HYPERTENSION
     Dosage: 87.48 UG/KG (0.061 UG/KG, 1 IN 1 MIN), SUBCUTANEOUS
     Dates: start: 200304, end: 201004
  2. TYVASO (6 MICROGRAM, AEROSOL FOR INHALATION) (TREPROSTINIL SODIUM) [Suspect]
     Indication: PULMONARY ARTERIAL HYPERTENSION
     Dosage: 18 TO 54 MICROGRAMS (1 IN 6 HR), INHALATION
     Dates: start: 201004
  3. SILDENAFIL [Concomitant]
  4. BOSENTAN [Concomitant]

REACTIONS (3)
  - Bacteraemia [None]
  - Infusion site pain [None]
  - Abscess [None]
